FAERS Safety Report 11404269 (Version 1)
Quarter: 2015Q3

REPORT INFORMATION
  Report Type: Spontaneous
  Country: GB (occurrence: GB)
  Receive Date: 20150821
  Receipt Date: 20150821
  Transmission Date: 20151125
  Serious: Yes (Other)
  Sender: FDA-Public Use
  Company Number: GB-TEVA-586341ACC

PATIENT
  Age: 82 Year
  Sex: Female

DRUGS (3)
  1. RAMIPRIL. [Concomitant]
     Active Substance: RAMIPRIL
     Indication: HYPERTENSION
     Dosage: 2.5 MILLIGRAM DAILY; BEEN ON FOR 3-4 YEARS; DAILY DOSE: 2.5 MILLIGRAM
     Dates: start: 2010
  2. BENDROFLUMETHIAZIDE [Concomitant]
     Active Substance: BENDROFLUMETHIAZIDE
     Indication: HYPERTENSION
     Dosage: 2.5 MILLIGRAM DAILY; BEEN ON FOR 3-4 YEARS; DAILY DOSE: 2.5 MILLIGRAM
     Dates: start: 2010
  3. AMOXICILLIN. [Suspect]
     Active Substance: AMOXICILLIN
     Indication: TOOTH INFECTION
     Dosage: 1500 MILLIGRAM DAILY; COMPLETED A 7 DAY COURSE; DAILY DOSE: 1500MILLIGRAM
     Dates: start: 20140903, end: 20140909

REACTIONS (8)
  - Throat irritation [Recovered/Resolved]
  - Dysphagia [Unknown]
  - Nausea [Recovered/Resolved]
  - Oral candidiasis [Recovered/Resolved]
  - Dysphonia [Recovered/Resolved]
  - Dizziness [Recovered/Resolved]
  - Vomiting [Recovered/Resolved]
  - Cough [Recovered/Resolved]
